FAERS Safety Report 15770991 (Version 1)
Quarter: 2018Q4

REPORT INFORMATION
  Report Type: Spontaneous
  Country: US (occurrence: US)
  Receive Date: 20181228
  Receipt Date: 20181228
  Transmission Date: 20190205
  Serious: Yes (Life-Threatening, Disabling)
  Sender: FDA-Public Use
  Company Number: None

PATIENT
  Age: 56 Year
  Sex: Female
  Weight: 76.5 kg

DRUGS (10)
  1. PROPRANOLOL [Concomitant]
     Active Substance: PROPRANOLOL HYDROCHLORIDE
  2. FISH OIL [Concomitant]
     Active Substance: FISH OIL
  3. DEPAKOTE [Concomitant]
     Active Substance: DIVALPROEX SODIUM
  4. OMEGA 3 [Concomitant]
     Active Substance: OMEGA-3 FATTY ACIDS
  5. MAGNESIUM [Concomitant]
     Active Substance: MAGNESIUM
  6. GLUCOSAMINE + CHONDROITIN [Concomitant]
  7. CLONZAPAM .5 MG [Suspect]
     Active Substance: CLONAZEPAM
     Indication: ANXIETY DISORDER
     Route: 048
     Dates: start: 20090505, end: 20180110
  8. LISINOPRIL. [Concomitant]
     Active Substance: LISINOPRIL
  9. TRAZODONE [Concomitant]
     Active Substance: TRAZODONE HYDROCHLORIDE
  10. HYROXYZINE [Concomitant]

REACTIONS (6)
  - Muscle tightness [None]
  - Loss of personal independence in daily activities [None]
  - Dyspnoea [None]
  - Anger [None]
  - Panic attack [None]
  - Withdrawal syndrome [None]

NARRATIVE: CASE EVENT DATE: 20180225
